FAERS Safety Report 6101077-8 (Version None)
Quarter: 2009Q1

REPORT INFORMATION
  Report Type: 
  Country: None (occurrence: None)
  Receive Date: 20090227
  Receipt Date: 20090220
  Transmission Date: 20090719
  Serious: Yes (Hospitalization)
  Sender: FDA-Public Use
  Company Number: 041386

PATIENT
  Age: 49 Year
  Sex: Female

DRUGS (1)
  1. PACLITAXEL [Suspect]
     Indication: OVARIAN CANCER

REACTIONS (10)
  - ARTHRITIS [None]
  - INADEQUATE ANALGESIA [None]
  - LUPUS-LIKE SYNDROME [None]
  - MUSCULOSKELETAL PAIN [None]
  - MYALGIA [None]
  - NORMOCHROMIC NORMOCYTIC ANAEMIA [None]
  - PLATELET COUNT INCREASED [None]
  - PLEURAL EFFUSION [None]
  - PLEURISY [None]
  - WHITE BLOOD CELL COUNT INCREASED [None]
